FAERS Safety Report 10554507 (Version 5)
Quarter: 2017Q2

REPORT INFORMATION
  Report Type: Spontaneous
  Country: US (occurrence: US)
  Receive Date: 20141030
  Receipt Date: 20170502
  Transmission Date: 20170829
  Serious: No
  Sender: FDA-Public Use
  Company Number: US-PFIZER INC-2014296893

PATIENT
  Age: 56 Year
  Sex: Female

DRUGS (9)
  1. LOMOTIL [Concomitant]
     Active Substance: ATROPINE SULFATE\DIPHENOXYLATE HYDROCHLORIDE
     Dosage: UNK
  2. SUTENT [Suspect]
     Active Substance: SUNITINIB MALATE
     Dosage: UNK UNK, CYCLIC (5 DAYS A WEEK FOR 4 WEEKS OFF)
  3. GLUCOTROL [Concomitant]
     Active Substance: GLIPIZIDE
     Dosage: 5 MG, UNK
     Route: 048
     Dates: start: 20110816
  4. SUTENT [Suspect]
     Active Substance: SUNITINIB MALATE
     Dosage: 25 MG, 1X/DAY (1 CAPSULE DAILY)
     Route: 048
  5. SUTENT [Suspect]
     Active Substance: SUNITINIB MALATE
     Indication: RENAL CANCER METASTATIC
     Dosage: 12.5 MG, CYCLIC, DAILY (4 WEEKS THEN 2 WEEKS OFF)
  6. ORTHO-EST [Concomitant]
     Active Substance: ESTROPIPATE
     Dosage: 1.25 MG, UNK
     Route: 048
     Dates: start: 20110816
  7. ISOPTIN - SLOW RELEASE [Concomitant]
     Dosage: 180 MG, UNK
     Route: 048
     Dates: start: 20110816
  8. MAXZIDE [Concomitant]
     Active Substance: HYDROCHLOROTHIAZIDE\TRIAMTERENE
     Dosage: 50 MG, UNK
     Route: 048
  9. SUTENT [Suspect]
     Active Substance: SUNITINIB MALATE
     Dosage: 25 MG, 1X/DAY
     Dates: start: 2013

REACTIONS (5)
  - Neoplasm progression [Unknown]
  - Diarrhoea [Not Recovered/Not Resolved]
  - Fatigue [Not Recovered/Not Resolved]
  - Dyspepsia [Recovered/Resolved]
  - Mental disorder [Not Recovered/Not Resolved]
